FAERS Safety Report 7702329-8 (Version None)
Quarter: 2011Q3

REPORT INFORMATION
  Report Type: 
  Country: None (occurrence: None)
  Receive Date: 20110822
  Receipt Date: 20110808
  Transmission Date: 20111222
  Serious: Yes (Hospitalization)
  Sender: FDA-Public Use
  Company Number: PHHO2011US13570

PATIENT
  Sex: Male
  Weight: 100.2 kg

DRUGS (4)
  1. CERTICAN [Suspect]
     Indication: RENAL TRANSPLANT
     Dosage: 0.75 MG, BID
     Route: 048
     Dates: start: 20110803
  2. METOPROLOL [Suspect]
     Dosage: 5 MG, 5 MIN X 2 DOSES
     Route: 042
     Dates: start: 20110807, end: 20110807
  3. PROGRAF [Concomitant]
     Indication: IMMUNOSUPPRESSION
     Dosage: 3 MG, BID
     Route: 048
     Dates: start: 20110803
  4. PREDNISONE [Concomitant]
     Indication: IMMUNOSUPPRESSION
     Dosage: 60 MG, QD
     Route: 048
     Dates: start: 20110805

REACTIONS (1)
  - ATRIAL FIBRILLATION [None]
